FAERS Safety Report 23871020 (Version 10)
Quarter: 2025Q1

REPORT INFORMATION
  Report Type: Report from Study
  Country: GB (occurrence: GB)
  Receive Date: 20240518
  Receipt Date: 20250224
  Transmission Date: 20250409
  Serious: Yes (Death, Life-Threatening, Hospitalization, Other)
  Sender: JOHNSON AND JOHNSON
  Company Number: GB-JNJFOC-20240520801

PATIENT
  Age: 74 Year
  Sex: Male
  Weight: 66.5 kg

DRUGS (10)
  1. TECLISTAMAB [Suspect]
     Active Substance: TECLISTAMAB
     Indication: Plasma cell myeloma
     Route: 058
     Dates: start: 20221229, end: 20221229
  2. TECLISTAMAB [Suspect]
     Active Substance: TECLISTAMAB
     Route: 058
     Dates: start: 20221231, end: 20221231
  3. TECLISTAMAB [Suspect]
     Active Substance: TECLISTAMAB
     Route: 058
     Dates: start: 20230103, end: 20230103
  4. COTRIMOXAZOLE [Concomitant]
     Active Substance: SULFAMETHOXAZOLE\TRIMETHOPRIM
     Indication: Infection prophylaxis
     Route: 065
     Dates: start: 20230418
  5. DOXYCYCLINE [Concomitant]
     Active Substance: DOXYCYCLINE
     Dates: start: 2020
  6. LANSOPRAZOLE [Concomitant]
     Active Substance: LANSOPRAZOLE
     Dates: start: 2020
  7. AMLODIPINE [Concomitant]
     Active Substance: AMLODIPINE BESYLATE
     Dates: start: 2020
  8. DARBEPOETIN ALFA [Concomitant]
     Active Substance: DARBEPOETIN ALFA
     Dates: start: 2020
  9. POSACONAZOLE [Concomitant]
     Active Substance: POSACONAZOLE
     Dates: start: 2020
  10. PREDNISOLONE [Concomitant]
     Active Substance: PREDNISOLONE
     Dates: start: 2020

REACTIONS (8)
  - Septic shock [Fatal]
  - Klebsiella bacteraemia [Fatal]
  - Plasma cell myeloma [Fatal]
  - Cystoid macular oedema [Fatal]
  - Immunosuppression [Fatal]
  - Lower respiratory tract infection [Recovered/Resolved]
  - Neutropenia [Recovered/Resolved]
  - Neutropenic sepsis [Not Recovered/Not Resolved]

NARRATIVE: CASE EVENT DATE: 20230216
